FAERS Safety Report 11885581 (Version 1)
Quarter: 2016Q1

REPORT INFORMATION
  Report Type: Spontaneous
  Country: FR (occurrence: FR)
  Receive Date: 20160104
  Receipt Date: 20160104
  Transmission Date: 20160526
  Serious: Yes (Hospitalization, Other)
  Sender: FDA-Public Use
  Company Number: FR-009507513-01096030

PATIENT
  Age: 38 Year
  Sex: Female
  Weight: 55 kg

DRUGS (14)
  1. PROPACETAMOL [Concomitant]
     Active Substance: PROPACETAMOL
     Indication: PYELONEPHRITIS
     Dosage: 2000 MG, UNK
     Route: 048
     Dates: start: 200106, end: 200106
  2. ABACAVIR SULFATE. [Suspect]
     Active Substance: ABACAVIR SULFATE
     Indication: HIV INFECTION
     Dosage: UNK
     Route: 048
     Dates: start: 20001102, end: 20010430
  3. ZIDOVUDINE. [Concomitant]
     Active Substance: ZIDOVUDINE
     Indication: PROPHYLAXIS AGAINST HIV INFECTION
     Route: 048
     Dates: start: 20010616
  4. CRIXIVAN [Suspect]
     Active Substance: INDINAVIR SULFATE
     Indication: HIV INFECTION
     Dosage: 800 MG, BID
     Route: 048
     Dates: start: 20010430
  5. SUSTIVA [Suspect]
     Active Substance: EFAVIRENZ
     Dosage: 600 MG, UNK
     Route: 048
     Dates: end: 20001102
  6. STAVUDINE. [Concomitant]
     Active Substance: STAVUDINE
     Indication: HIV INFECTION
     Route: 048
  7. ZIDOVUDINE. [Suspect]
     Active Substance: ZIDOVUDINE
     Indication: HIV INFECTION
     Dosage: 600 MG, UNK
     Route: 048
     Dates: start: 20010430
  8. SUSTIVA [Suspect]
     Active Substance: EFAVIRENZ
     Dosage: 600 MG, UNK
     Route: 048
     Dates: start: 20010430
  9. LAMIVUDINE. [Suspect]
     Active Substance: LAMIVUDINE
     Indication: HIV INFECTION
     Dosage: 300 MG, QD
     Route: 048
     Dates: end: 20001102
  10. CRIXIVAN [Suspect]
     Active Substance: INDINAVIR SULFATE
     Route: 048
  11. LAMIVUDINE AND ZIDOVUDINE [Suspect]
     Active Substance: LAMIVUDINE\ZIDOVUDINE
     Indication: HIV INFECTION
     Dosage: 1 DF, QD
     Route: 048
     Dates: start: 20001102
  12. RITONAVIR. [Suspect]
     Active Substance: RITONAVIR
     Indication: HIV INFECTION
     Dosage: 100 MG, BID
     Route: 048
     Dates: start: 20010430
  13. CEFTRIAXONE. [Concomitant]
     Active Substance: CEFTRIAXONE
     Indication: PYELONEPHRITIS
     Dosage: 2000 MG, UNK
     Dates: start: 200106, end: 200106
  14. NEVIRAPINE. [Concomitant]
     Active Substance: NEVIRAPINE
     Indication: PROPHYLAXIS AGAINST HIV INFECTION
     Route: 048
     Dates: start: 20010616

REACTIONS (9)
  - Lipodystrophy acquired [Recovered/Resolved]
  - Exposure during pregnancy [Recovered/Resolved]
  - Pyrexia [Unknown]
  - Pregnancy [Unknown]
  - Pyelonephritis [Recovered/Resolved]
  - Bradycardia [Recovered/Resolved]
  - Caesarean section [Unknown]
  - Escherichia pyelonephritis [Unknown]
  - Live birth [Unknown]

NARRATIVE: CASE EVENT DATE: 20010430
